FAERS Safety Report 7000999-3 (Version None)
Quarter: 2010Q3

REPORT INFORMATION
  Report Type: 
  Country: None (occurrence: None)
  Receive Date: 20100920
  Receipt Date: 20070709
  Transmission Date: 20110219
  Serious: Yes (Other)
  Sender: FDA-Public Use
  Company Number: US-ASTRAZENECA-2006UW12301

PATIENT
  Age: 37 Year
  Sex: Female
  Weight: 65.5 kg

DRUGS (11)
  1. SEROQUEL [Suspect]
     Indication: DEPRESSION
     Dosage: 25 - 100 MG
     Route: 048
     Dates: start: 20020101, end: 20050101
  2. SEROQUEL [Suspect]
     Indication: AFFECTIVE DISORDER
     Dosage: 25 - 100 MG
     Route: 048
     Dates: start: 20020101, end: 20050101
  3. SEROQUEL [Suspect]
     Dosage: 25-125 MG
     Route: 048
     Dates: start: 20031001, end: 20051128
  4. SEROQUEL [Suspect]
     Dosage: 25-125 MG
     Route: 048
     Dates: start: 20031001, end: 20051128
  5. ZYPREXA [Suspect]
  6. LEXAPRO [Concomitant]
     Indication: ANTIDEPRESSANT THERAPY
     Route: 048
     Dates: start: 20031001, end: 20061020
  7. DEPAKOTE ER [Concomitant]
     Indication: CONVULSION
     Route: 048
     Dates: start: 20050620
  8. MOTRIN [Concomitant]
     Indication: PAIN
     Dosage: 600-1800 MG
     Dates: start: 20010517
  9. WELLBUTRIN XL [Concomitant]
     Indication: ANTIDEPRESSANT THERAPY
     Dosage: 150-400 MG
     Dates: start: 20031021
  10. LEVAQUIN [Concomitant]
     Dates: start: 20010727
  11. CRESTOR [Concomitant]
     Indication: LIPIDS
     Dosage: 10-20 MG
     Dates: start: 20040810

REACTIONS (4)
  - CONVULSION [None]
  - DIABETES MELLITUS [None]
  - PANCREATITIS [None]
  - TYPE 2 DIABETES MELLITUS [None]
